FAERS Safety Report 21872483 (Version 1)
Quarter: 2023Q1

REPORT INFORMATION
  Report Type: Spontaneous
  Country: US (occurrence: US)
  Receive Date: 20230117
  Receipt Date: 20230117
  Transmission Date: 20230418
  Serious: Yes (Other)
  Sender: FDA-Public Use
  Company Number: US-COOPERSURGICAL, INC.-US-2023CPS000035

PATIENT
  Age: 44 Year
  Sex: Female
  Weight: 97.959 kg

DRUGS (1)
  1. PARAGARD T 380A [Suspect]
     Active Substance: COPPER
     Indication: Product used for unknown indication
     Dosage: UNK
     Route: 015
     Dates: start: 20221004, end: 20230104

REACTIONS (4)
  - Uterine haemorrhage [Not Recovered/Not Resolved]
  - Abnormal uterine bleeding [Unknown]
  - Muscle spasms [Unknown]
  - Device dislocation [Recovered/Resolved]

NARRATIVE: CASE EVENT DATE: 20221004
